FAERS Safety Report 7571611-X (Version None)
Quarter: 2011Q2

REPORT INFORMATION
  Report Type: 
  Country: None (occurrence: None)
  Receive Date: 20110613
  Receipt Date: 20110531
  Transmission Date: 20111010
  Serious: Yes (Other)
  Sender: FDA-Public Use
  Company Number: 2011028757

PATIENT
  Age: 62 Year
  Sex: Female
  Weight: 80.7403 kg

DRUGS (27)
  1. ZOLOFT [Concomitant]
  2. ALLOPURINOL [Concomitant]
  3. LANTUS [Concomitant]
  4. CLONAZEPAM [Concomitant]
  5. OXYCONTIN [Concomitant]
  6. CALTRATE (CALCIUM CARBONATE) [Concomitant]
  7. QVAR [Concomitant]
  8. TREXALL [Concomitant]
  9. DIAZEPAM [Concomitant]
  10. XOPENEX [Concomitant]
  11. XOPENEX [Concomitant]
  12. IMDUR [Concomitant]
  13. ZANAFLEX [Concomitant]
  14. HIZENTRA [Suspect]
     Indication: HYPOGAMMAGLOBULINAEMIA
     Dosage: SEE IMAGE
     Route: 058
     Dates: start: 20110518
  15. HIZENTRA [Suspect]
     Indication: HYPOGAMMAGLOBULINAEMIA
     Dosage: SEE IMAGE
     Route: 058
     Dates: start: 20110525
  16. PERCOCET [Concomitant]
  17. ASTELIN [Concomitant]
  18. SUCRALFATE [Concomitant]
  19. DILTIAZEM [Concomitant]
  20. FERROUS SULFATE TAB [Concomitant]
  21. CENTRUM SILVER (CENTRUM /00554501/) [Concomitant]
  22. WELCHOL [Concomitant]
  23. FIORINAL (FIORINAL /00090401/) [Concomitant]
  24. LASIX [Concomitant]
  25. NASACORT [Concomitant]
  26. NOVOLOG [Concomitant]
  27. OMEPRAZOLE [Concomitant]

REACTIONS (6)
  - PAIN [None]
  - FATIGUE [None]
  - ARTHRALGIA [None]
  - MUSCULAR WEAKNESS [None]
  - SHOCK HYPOGLYCAEMIC [None]
  - HYPERSOMNIA [None]
